FAERS Safety Report 7119147-4 (Version None)
Quarter: 2010Q4

REPORT INFORMATION
  Report Type: 
  Country: None (occurrence: None)
  Receive Date: 20101123
  Receipt Date: 20100730
  Transmission Date: 20110411
  Serious: No
  Sender: FDA-Public Use
  Company Number: US-MYLANLABS-2010S1014051

PATIENT
  Age: 56 Year
  Sex: Female

DRUGS (6)
  1. METFORMIN HYDROCHLORIDE [Suspect]
     Route: 048
     Dates: start: 20090101
  2. METFORMIN HYDROCHLORIDE [Suspect]
     Dates: start: 20100712
  3. ALENDRONIC ACID [Suspect]
  4. ROSIGLITAZONE MALEATE [Suspect]
  5. AMLODIPINE BESYLATE [Suspect]
  6. SIMVASTATIN [Suspect]

REACTIONS (3)
  - DRUG DISPENSING ERROR [None]
  - MUSCULOSKELETAL PAIN [None]
  - NAUSEA [None]
